FAERS Safety Report 6215392-0 (Version None)
Quarter: 2009Q2

REPORT INFORMATION
  Report Type: 
  Country: None (occurrence: None)
  Receive Date: 20090603
  Receipt Date: 20090519
  Transmission Date: 20091009
  Serious: Yes (Death)
  Sender: FDA-Public Use
  Company Number: APP200900286

PATIENT
  Age: 64 Year
  Sex: Male

DRUGS (8)
  1. AMIODARONE HYDROCHLORIDE [Suspect]
     Indication: ATRIAL FIBRILLATION
     Dosage: 150 MG, ONCE, INTRAVENOUS BOLUS
     Route: 040
     Dates: start: 20090517, end: 20090517
  2. DILTIAZEM [Concomitant]
  3. LOVENOX [Concomitant]
  4. LASIX [Concomitant]
  5. INSULIN (INSULIN) [Concomitant]
  6. METOPROLOL (METOPROLOL) [Concomitant]
  7. ZOSYN [Concomitant]
  8. HYDROMORPHONE HCL [Concomitant]

REACTIONS (3)
  - CARDIO-RESPIRATORY ARREST [None]
  - INFUSION RELATED REACTION [None]
  - VENTRICULAR TACHYCARDIA [None]
